FAERS Safety Report 7469186-9 (Version None)
Quarter: 2011Q2

REPORT INFORMATION
  Report Type: 
  Country: None (occurrence: None)
  Receive Date: 20110429
  Receipt Date: 20110414
  Transmission Date: 20111010
  Serious: Yes (Other)
  Sender: FDA-Public Use
  Company Number: 2011MA004159

PATIENT
  Age: 71 Year
  Sex: Male

DRUGS (18)
  1. TRICOR [Concomitant]
  2. FOLIC ACID [Concomitant]
  3. METOCLOPRAMIDE [Suspect]
     Indication: GASTROINTESTINAL MOTILITY DISORDER
  4. WELCHOL [Concomitant]
  5. CITALOPRAM HYDROBROMIDE [Concomitant]
  6. PLAVIX [Concomitant]
  7. LIPITOR [Concomitant]
  8. METOCLOPRAMIDE [Concomitant]
  9. PRILOSEC [Concomitant]
  10. FISH OIL [Concomitant]
  11. BUDEPRION [Concomitant]
  12. VITAMIN D [Concomitant]
  13. NORTRIPTYLINE HCL [Concomitant]
  14. METOPROLOL TARTRATE [Concomitant]
  15. TERAZOSIN HCL [Concomitant]
  16. QUINAPRIL [Concomitant]
  17. CLONAZEPAM [Concomitant]
  18. ASPIRIN [Concomitant]

REACTIONS (5)
  - CHOREA [None]
  - TARDIVE DYSKINESIA [None]
  - DYSKINESIA [None]
  - SOMNOLENCE [None]
  - DRUG INEFFECTIVE [None]
